FAERS Safety Report 18105965 (Version 1)
Quarter: 2020Q3

REPORT INFORMATION
  Report Type: Spontaneous
  Country: HR (occurrence: HR)
  Receive Date: 20200804
  Receipt Date: 20200804
  Transmission Date: 20201103
  Serious: Yes (Other)
  Sender: FDA-Public Use
  Company Number: HR-TEVA-2020-HR-1808214

PATIENT
  Sex: Female

DRUGS (2)
  1. PREGABALIN. [Suspect]
     Active Substance: PREGABALIN
     Dosage: 175MG
     Route: 048
     Dates: start: 20200502, end: 20200502
  2. LYRICA [Suspect]
     Active Substance: PREGABALIN
     Dosage: 1400MG, CARDS (56 HARD CAPSULES) LYRICE (PREGABALIN) 25 MG
     Route: 048
     Dates: start: 20200502, end: 20200502

REACTIONS (3)
  - Intentional overdose [Unknown]
  - Suicide attempt [Unknown]
  - Diarrhoea [Unknown]

NARRATIVE: CASE EVENT DATE: 20200502
